FAERS Safety Report 15096780 (Version 1)
Quarter: 2018Q3

REPORT INFORMATION
  Report Type: Spontaneous
  Country: US (occurrence: US)
  Receive Date: 20180702
  Receipt Date: 20180702
  Transmission Date: 20181010
  Serious: No
  Sender: FDA-Public Use
  Company Number: US-ELI_LILLY_AND_COMPANY-US201806014364

PATIENT
  Age: 35 Year
  Sex: Female

DRUGS (2)
  1. HUMULIN R [Suspect]
     Active Substance: INSULIN HUMAN
     Indication: TYPE 2 DIABETES MELLITUS
     Dosage: 50 U, BID
     Route: 065
     Dates: end: 20180624
  2. HUMULIN R [Suspect]
     Active Substance: INSULIN HUMAN
     Dosage: 50 U, BID
     Route: 065
     Dates: end: 20180624

REACTIONS (2)
  - Wrong technique in product usage process [Recovered/Resolved]
  - Hypoglycaemia [Recovered/Resolved]

NARRATIVE: CASE EVENT DATE: 20180624
